FAERS Safety Report 25048296 (Version 2)
Quarter: 2025Q1

REPORT INFORMATION
  Report Type: Spontaneous
  Country: US (occurrence: US)
  Receive Date: 20250307
  Receipt Date: 20250328
  Transmission Date: 20250409
  Serious: No
  Sender: ALEXION PHARMACEUTICALS
  Company Number: US-AstraZeneca-CH-00819424A

PATIENT

DRUGS (1)
  1. SOLIRIS [Suspect]
     Active Substance: ECULIZUMAB
     Indication: Myasthenia gravis
     Route: 065

REACTIONS (7)
  - Product dose omission issue [Unknown]
  - Hypervolaemia [Unknown]
  - Swelling [Unknown]
  - Diarrhoea [Unknown]
  - Mastication disorder [Unknown]
  - Dysphagia [Unknown]
  - Dysarthria [Unknown]
